FAERS Safety Report 16822346 (Version 1)
Quarter: 2019Q3

REPORT INFORMATION
  Report Type: Spontaneous
  Country: US (occurrence: US)
  Receive Date: 20190918
  Receipt Date: 20190918
  Transmission Date: 20191005
  Serious: No
  Sender: FDA-Public Use
  Company Number: US-BEH-2019106474

PATIENT
  Sex: Female

DRUGS (2)
  1. HIZENTRA [Suspect]
     Active Substance: HUMAN IMMUNOGLOBULIN G
     Indication: DIGEORGE^S SYNDROME
     Dosage: 10 GRAM, QW
     Route: 058
     Dates: start: 20170201
  2. HIZENTRA [Suspect]
     Active Substance: HUMAN IMMUNOGLOBULIN G
     Dosage: 1 GRAM
     Route: 058
     Dates: start: 20170201

REACTIONS (2)
  - Injection site haemorrhage [Unknown]
  - Product use issue [Unknown]
